FAERS Safety Report 8492927-9 (Version None)
Quarter: 2012Q3

REPORT INFORMATION
  Report Type: 
  Country: None (occurrence: None)
  Receive Date: 20120706
  Receipt Date: 20120627
  Transmission Date: 20120928
  Serious: Yes (Congenital Anomaly)
  Sender: FDA-Public Use
  Company Number: US-GLAXOSMITHKLINE-A0980494A

PATIENT
  Sex: Male

DRUGS (4)
  1. FOLIC ACID [Concomitant]
  2. PAXIL [Suspect]
     Indication: PRODUCT USED FOR UNKNOWN INDICATION
     Route: 064
  3. PROGESTERONE [Concomitant]
     Route: 030
  4. ASPIRIN [Concomitant]

REACTIONS (4)
  - FOETAL EXPOSURE DURING PREGNANCY [None]
  - HAND DEFORMITY [None]
  - ATRIAL SEPTAL DEFECT [None]
  - SYNDACTYLY [None]
